FAERS Safety Report 6671068-7 (Version None)
Quarter: 2010Q2

REPORT INFORMATION
  Report Type: 
  Country: None (occurrence: None)
  Receive Date: 20100407
  Receipt Date: 20100401
  Transmission Date: 20101027
  Serious: Yes (Other)
  Sender: FDA-Public Use
  Company Number: US-ASTRAZENECA-2010SE14584

PATIENT
  Age: 15600 Day
  Sex: Female
  Weight: 80.7 kg

DRUGS (5)
  1. NEXIUM [Suspect]
     Indication: PEPTIC ULCER
     Route: 048
     Dates: start: 20020101, end: 20040416
  2. NEXIUM [Suspect]
     Route: 048
     Dates: start: 20040601, end: 20100201
  3. SOMA [Concomitant]
  4. ROXICODONE [Concomitant]
     Dosage: 1 Q 4-6 HOURS
  5. CITALOPRAM HYDROBROMIDE [Concomitant]
     Dosage: 1 DAILY IN AM

REACTIONS (14)
  - DRUG DOSE OMISSION [None]
  - EYE SWELLING [None]
  - FACE INJURY [None]
  - GASTROOESOPHAGEAL REFLUX DISEASE [None]
  - INJURY [None]
  - INTERVERTEBRAL DISC PROTRUSION [None]
  - JOINT DISLOCATION [None]
  - NECK INJURY [None]
  - NERVE INJURY [None]
  - PELVIC FRACTURE [None]
  - ROAD TRAFFIC ACCIDENT [None]
  - SPINAL FRACTURE [None]
  - THROMBOSIS [None]
  - VAGINAL HAEMORRHAGE [None]
